FAERS Safety Report 19161058 (Version 2)
Quarter: 2022Q3

REPORT INFORMATION
  Report Type: Spontaneous
  Country: US (occurrence: US)
  Receive Date: 20210421
  Receipt Date: 20220913
  Transmission Date: 20221027
  Serious: Yes (Other)
  Sender: FDA-Public Use
  Company Number: US-SA-SAC20210415001531

PATIENT
  Age: 74 Year
  Sex: Male

DRUGS (1)
  1. ZANTAC [Suspect]
     Active Substance: RANITIDINE HYDROCHLORIDE
     Indication: Dyspepsia
     Dosage: 75 MG
     Dates: start: 198501, end: 201705

REACTIONS (2)
  - Gastric cancer stage I [Unknown]
  - Prostate cancer [Unknown]

NARRATIVE: CASE EVENT DATE: 20170403
